FAERS Safety Report 6814332-0 (Version None)
Quarter: 2010Q3

REPORT INFORMATION
  Report Type: 
  Country: None (occurrence: None)
  Receive Date: 20100702
  Receipt Date: 20100621
  Transmission Date: 20110219
  Serious: Yes (Other)
  Sender: FDA-Public Use
  Company Number: US-ELI_LILLY_AND_COMPANY-US201006006209

PATIENT
  Sex: Female

DRUGS (1)
  1. FORTEO [Suspect]

REACTIONS (5)
  - ARTHRALGIA [None]
  - CONCUSSION [None]
  - FALL [None]
  - INJECTION SITE PAIN [None]
  - PAIN IN EXTREMITY [None]
